FAERS Safety Report 10744907 (Version 1)
Quarter: 2015Q1

REPORT INFORMATION
  Report Type: Spontaneous
  Country: US (occurrence: None)
  Receive Date: 20150112
  Receipt Date: 20150112
  Transmission Date: 20150721
  Serious: Yes (Hospitalization)
  Sender: FDA-Public Use
  Company Number: 1359235

PATIENT
  Age: 72 Year
  Sex: Male

DRUGS (2)
  1. ACTIVASE [Suspect]
     Active Substance: ALTEPLASE
     Indication: CEREBROVASCULAR ACCIDENT
     Dosage: NOT OTHERWISE SPECIFIED
     Route: 042
     Dates: start: 20140228, end: 20140228
  2. ACTIVASE [Suspect]
     Active Substance: ALTEPLASE
     Indication: ISCHAEMIC STROKE
     Dosage: NOT OTHERWISE SPECIFIED
     Route: 042
     Dates: start: 20140228, end: 20140228

REACTIONS (4)
  - Haemorrhage intracranial [None]
  - Haemorrhagic transformation stroke [None]
  - Asthenia [None]
  - Basal ganglia haemorrhage [None]

NARRATIVE: CASE EVENT DATE: 20140302
